FAERS Safety Report 17468482 (Version 2)
Quarter: 2020Q1

REPORT INFORMATION
  Report Type: Spontaneous
  Country: US (occurrence: US)
  Receive Date: 20200227
  Receipt Date: 20200331
  Transmission Date: 20200409
  Serious: No
  Sender: FDA-Public Use
  Company Number: US-ASTRAZENECA-2020SE17861

PATIENT
  Age: 73 Year
  Sex: Male
  Weight: 472.2 kg

DRUGS (2)
  1. SYMBICORT [Suspect]
     Active Substance: BUDESONIDE\FORMOTEROL FUMARATE DIHYDRATE
     Indication: ASTHMA
     Dosage: 160/4.5, TWICE IN THE MORNING
     Route: 055
     Dates: end: 201912
  2. SYMBICORT [Suspect]
     Active Substance: BUDESONIDE\FORMOTEROL FUMARATE DIHYDRATE
     Indication: ASTHMA
     Dosage: 160/4.5, 2 IN THE MORNING AND 2 AT BEDTIME
     Route: 055
     Dates: start: 201912

REACTIONS (6)
  - Wrong technique in product usage process [Unknown]
  - Emphysema [Not Recovered/Not Resolved]
  - Product dose omission [Unknown]
  - Device failure [Unknown]
  - Device use issue [Unknown]
  - Device malfunction [Unknown]

NARRATIVE: CASE EVENT DATE: 2019
